FAERS Safety Report 8143250-3 (Version None)
Quarter: 2012Q1

REPORT INFORMATION
  Report Type: 
  Country: None (occurrence: None)
  Receive Date: 20120217
  Receipt Date: 20120215
  Transmission Date: 20120608
  Serious: Yes (Other)
  Sender: FDA-Public Use
  Company Number: US-PFIZER INC-2012041298

PATIENT
  Sex: Female
  Weight: 103 kg

DRUGS (2)
  1. LIPITOR [Concomitant]
     Indication: BLOOD CHOLESTEROL INCREASED
     Dosage: UNK
  2. CHANTIX [Suspect]
     Indication: SMOKING CESSATION THERAPY
     Dosage: 0.5 MG, 1X/DAY
     Route: 048

REACTIONS (4)
  - TONGUE DISORDER [None]
  - FLUID RETENTION [None]
  - ABNORMAL DREAMS [None]
  - GOUT [None]
